FAERS Safety Report 10144324 (Version 2)
Quarter: 2014Q2

REPORT INFORMATION
  Report Type: Spontaneous
  Country: IT (occurrence: IT)
  Receive Date: 20140430
  Receipt Date: 20140610
  Transmission Date: 20141212
  Serious: Yes (Other)
  Sender: FDA-Public Use
  Company Number: IT-WATSON-2014-08571

PATIENT
  Age: 36 Year
  Sex: Female

DRUGS (2)
  1. TRIAZOLAM (UNKNOWN) [Suspect]
     Indication: DRUG ABUSE
     Dosage: 5 MG, TOTAL
     Route: 048
     Dates: start: 20130804, end: 20130804
  2. EFFERALGAN                         /00020001/ [Suspect]
     Indication: DRUG ABUSE
     Dosage: 6 DF, TOTAL
     Route: 048
     Dates: start: 20130804, end: 20130804

REACTIONS (4)
  - Loss of consciousness [Recovering/Resolving]
  - Miosis [Recovering/Resolving]
  - Sopor [Recovering/Resolving]
  - Drug abuse [Recovering/Resolving]
